FAERS Safety Report 14143511 (Version 2)
Quarter: 2018Q1

REPORT INFORMATION
  Report Type: Report from Study
  Country: US (occurrence: US)
  Receive Date: 20171030
  Receipt Date: 20180123
  Transmission Date: 20180508
  Serious: No
  Sender: FDA-Public Use
  Company Number: US-AMGEN-USASL2017147861

PATIENT
  Age: 63 Year
  Sex: Female
  Weight: 72.56 kg

DRUGS (2)
  1. REPATHA [Suspect]
     Active Substance: EVOLOCUMAB
     Dosage: 140 UNK, UNK
     Route: 065
     Dates: start: 20171012
  2. REPATHA [Suspect]
     Active Substance: EVOLOCUMAB
     Indication: BLOOD CHOLESTEROL INCREASED
     Dosage: 140 MG, Q2WK
     Route: 065
     Dates: start: 20170719, end: 20170719

REACTIONS (6)
  - Myalgia [Recovered/Resolved]
  - Feeling abnormal [Recovered/Resolved]
  - Feeling of body temperature change [Recovered/Resolved]
  - Influenza like illness [Recovered/Resolved]
  - Headache [Recovered/Resolved]
  - High density lipoprotein decreased [Unknown]

NARRATIVE: CASE EVENT DATE: 2017
